FAERS Safety Report 7967789-6 (Version None)
Quarter: 2011Q4

REPORT INFORMATION
  Report Type: 
  Country: None (occurrence: None)
  Receive Date: 20111208
  Receipt Date: 20111208
  Transmission Date: 20120403
  Serious: Yes (Hospitalization)
  Sender: FDA-Public Use
  Company Number: None

PATIENT
  Sex: Male
  Weight: 13.2 kg

DRUGS (4)
  1. METHOTREXATE [Suspect]
     Dosage: 12 MG
  2. VINCRISTINE SULFATE [Suspect]
     Dosage: .9 MG
  3. LEUCOVORIN CALCIUM [Suspect]
     Dosage: 6 MG
  4. MERCAPTOPURINE [Suspect]
     Dosage: 225 MG

REACTIONS (4)
  - MENINGITIS [None]
  - HYDROCEPHALUS [None]
  - CEREBROVASCULAR ACCIDENT [None]
  - CEREBRAL INFARCTION [None]
